FAERS Safety Report 8462696-7 (Version None)
Quarter: 2012Q2

REPORT INFORMATION
  Report Type: 
  Country: None (occurrence: None)
  Receive Date: 20120619
  Receipt Date: 20120619
  Transmission Date: 20120825
  Serious: Yes (Other)
  Sender: FDA-Public Use
  Company Number: None

PATIENT
  Age: 33 Year
  Sex: Female
  Weight: 74.8435 kg

DRUGS (1)
  1. CREST PRO-HEALTH CLINICAL PROCTER AND GAMBLE [Suspect]
     Indication: DENTAL DISORDER PROPHYLAXIS
     Dosage: 20 ML 30 SEC 2X DAILY PO
     Route: 048
     Dates: start: 20120615, end: 20120616

REACTIONS (5)
  - AGEUSIA [None]
  - PAIN IN JAW [None]
  - SALIVARY GLAND ENLARGEMENT [None]
  - HYPOAESTHESIA ORAL [None]
  - SIALOADENITIS [None]
